FAERS Safety Report 12827182 (Version 1)
Quarter: 2016Q4

REPORT INFORMATION
  Report Type: Report from Study
  Country: None (occurrence: US)
  Receive Date: 20161006
  Receipt Date: 20161006
  Transmission Date: 20170207
  Serious: Yes (Other)
  Sender: FDA-Public Use
  Company Number: US-ABBVIE-16K-163-1669145-00

PATIENT
  Age: 69 Year
  Sex: Female

DRUGS (1)
  1. HUMIRA [Suspect]
     Active Substance: ADALIMUMAB
     Indication: RHEUMATOID ARTHRITIS
     Route: 058
     Dates: start: 20160202, end: 20160711

REACTIONS (10)
  - Suicidal ideation [Recovered/Resolved]
  - Hypersensitivity [Unknown]
  - Aversion [Recovered/Resolved]
  - Eye swelling [Recovering/Resolving]
  - Injection site pain [Recovered/Resolved]
  - Anxiety [Recovered/Resolved]
  - Swelling face [Recovering/Resolving]
  - Drug ineffective [Unknown]
  - Rash [Recovering/Resolving]
  - Tinnitus [Recovered/Resolved]

NARRATIVE: CASE EVENT DATE: 2016
